FAERS Safety Report 4388445-X (Version None)
Quarter: 2004Q2

REPORT INFORMATION
  Report Type: 
  Country: None (occurrence: None)
  Receive Date: 20040625
  Receipt Date: 20040616
  Transmission Date: 20050107
  Serious: Yes (Other)
  Sender: FDA-Public Use
  Company Number: FR-JNJFOC-20040604070

PATIENT
  Age: 2 Year
  Sex: Male

DRUGS (1)
  1. PROPULSID [Suspect]
     Indication: GASTROOESOPHAGEAL REFLUX DISEASE
     Dosage: 0.2 MG, 4 IN 1 DAY, ORAL
     Route: 048
     Dates: start: 20040206, end: 20040330

REACTIONS (1)
  - FUNDOPLICATION [None]
